FAERS Safety Report 5499957-X (Version None)
Quarter: 2007Q4

REPORT INFORMATION
  Report Type: 
  Country: None (occurrence: None)
  Receive Date: 20071026
  Receipt Date: 20070925
  Transmission Date: 20080405
  Serious: Yes (Other)
  Sender: FDA-Public Use
  Company Number: AU-GENENTECH-248340

PATIENT
  Sex: Female

DRUGS (2)
  1. BEVACIZUMAB [Suspect]
     Indication: BREAST CANCER METASTATIC
     Dosage: 750 MG, Q3W
     Route: 042
     Dates: start: 20070504
  2. TAXOTERE [Suspect]
     Indication: BREAST CANCER METASTATIC
     Dosage: 60 MG, UNK
     Dates: start: 20070504

REACTIONS (1)
  - HEPATIC CIRRHOSIS [None]
